FAERS Safety Report 22034681 (Version 1)
Quarter: 2023Q1

REPORT INFORMATION
  Report Type: Spontaneous
  Country: US (occurrence: US)
  Receive Date: 20230224
  Receipt Date: 20230224
  Transmission Date: 20230417
  Serious: No
  Sender: FDA-Public Use
  Company Number: US-PFIZER INC-202300079802

PATIENT
  Sex: Female

DRUGS (2)
  1. PAXLOVID [Suspect]
     Active Substance: NIRMATRELVIR\RITONAVIR
     Indication: COVID-19 treatment
     Dosage: UNK
  2. REMDESIVIR [Concomitant]
     Active Substance: REMDESIVIR
     Dosage: UNK

REACTIONS (7)
  - Diarrhoea [Unknown]
  - Taste disorder [Unknown]
  - Asthenia [Unknown]
  - Hypokinesia [Unknown]
  - Hypersomnia [Unknown]
  - Incontinence [Unknown]
  - Anal incontinence [Unknown]
